FAERS Safety Report 6728882-9 (Version None)
Quarter: 2010Q2

REPORT INFORMATION
  Report Type: 
  Country: None (occurrence: None)
  Receive Date: 20100517
  Receipt Date: 20100225
  Transmission Date: 20101027
  Serious: No
  Sender: FDA-Public Use
  Company Number: US-ABBOTT-10P-163-0629206-00

PATIENT
  Sex: Female
  Weight: 56.296 kg

DRUGS (4)
  1. SIMCOR [Suspect]
     Indication: BLOOD CHOLESTEROL INCREASED
     Route: 048
     Dates: start: 20100203
  2. ELAVIL [Concomitant]
     Indication: IRRITABLE BOWEL SYNDROME
     Route: 048
  3. ASPIRIN [Concomitant]
     Indication: FLUSHING
     Route: 048
  4. ASPIRIN [Concomitant]
     Indication: PROPHYLAXIS

REACTIONS (4)
  - ERYTHEMA [None]
  - FLUSHING [None]
  - PARAESTHESIA [None]
  - PRURITUS [None]
